FAERS Safety Report 6358364-8 (Version None)
Quarter: 2009Q3

REPORT INFORMATION
  Report Type: 
  Country: None (occurrence: None)
  Receive Date: 20090916
  Receipt Date: 20090904
  Transmission Date: 20100115
  Serious: Yes (Congenital Anomaly)
  Sender: FDA-Public Use
  Company Number: FR-ROCHE-611228

PATIENT
  Sex: Male

DRUGS (3)
  1. FUZEON [Suspect]
     Indication: HIV INFECTION
     Route: 064
     Dates: end: 20080401
  2. KALETRA [Suspect]
     Indication: HIV INFECTION
     Route: 064
     Dates: end: 20080401
  3. KIVEXA [Suspect]
     Indication: HIV INFECTION
     Route: 064
     Dates: end: 20080401

REACTIONS (1)
  - SKIN DEPIGMENTATION [None]
